FAERS Safety Report 10487374 (Version 2)
Quarter: 2014Q4

REPORT INFORMATION
  Report Type: Spontaneous
  Country: BE (occurrence: BE)
  Receive Date: 20141001
  Receipt Date: 20141010
  Transmission Date: 20150528
  Serious: Yes (Death, Life-Threatening, Other)
  Sender: FDA-Public Use
  Company Number: BE-BAYER-2014-142964

PATIENT
  Age: 45 Year
  Sex: Female
  Weight: 75 kg

DRUGS (1)
  1. YASMIN [Suspect]
     Active Substance: DROSPIRENONE\ETHINYL ESTRADIOL
     Indication: ORAL CONTRACEPTION

REACTIONS (6)
  - Deep vein thrombosis [None]
  - Cardiac ventricular thrombosis [Fatal]
  - Disseminated intravascular coagulation [Fatal]
  - Post procedural pulmonary embolism [Fatal]
  - Atrial thrombosis [Fatal]
  - Cardiac arrest [None]
